FAERS Safety Report 17608349 (Version 5)
Quarter: 2020Q4

REPORT INFORMATION
  Report Type: Spontaneous
  Country: US (occurrence: US)
  Receive Date: 20200331
  Receipt Date: 20201106
  Transmission Date: 20210113
  Serious: Yes (Hospitalization)
  Sender: FDA-Public Use
  Company Number: US-VIFOR (INTERNATIONAL) INC.-VIT-2020-04619

PATIENT
  Sex: Female

DRUGS (3)
  1. VELTASSA [Suspect]
     Active Substance: PATIROMER
     Route: 048
     Dates: start: 20200228
  2. VELTASSA [Suspect]
     Active Substance: PATIROMER
     Route: 048
  3. VELTASSA [Suspect]
     Active Substance: PATIROMER
     Indication: HYPERKALAEMIA
     Route: 048
     Dates: start: 2020

REACTIONS (4)
  - Abdominal distension [Unknown]
  - Renal transplant [Unknown]
  - Blood potassium increased [Unknown]
  - Constipation [Unknown]

NARRATIVE: CASE EVENT DATE: 2020
